FAERS Safety Report 15949513 (Version 3)
Quarter: 2019Q3

REPORT INFORMATION
  Report Type: Spontaneous
  Country: US (occurrence: US)
  Receive Date: 20190211
  Receipt Date: 20190717
  Transmission Date: 20191004
  Serious: Yes (Other)
  Sender: FDA-Public Use
  Company Number: US-ASTRAZENECA-2018SF25974

PATIENT
  Sex: Female
  Weight: 93.4 kg

DRUGS (21)
  1. LIOFEN [Concomitant]
  2. NEXIUM [Suspect]
     Active Substance: ESOMEPRAZOLE MAGNESIUM
     Indication: GASTROOESOPHAGEAL REFLUX DISEASE
     Dosage: 40.0MG UNKNOWN
     Route: 048
     Dates: start: 20071208
  3. MELOXICAM. [Concomitant]
     Active Substance: MELOXICAM
  4. ROLAIDS [Concomitant]
     Active Substance: CALCIUM CARBONATE\MAGNESIUM HYDROXIDE
  5. AMITIZA [Concomitant]
     Active Substance: LUBIPROSTONE
  6. LOVAZA [Concomitant]
     Active Substance: OMEGA-3-ACID ETHYL ESTERS
  7. PREDNISONE. [Concomitant]
     Active Substance: PREDNISONE
  8. NEXIUM [Suspect]
     Active Substance: ESOMEPRAZOLE MAGNESIUM
     Indication: GASTROOESOPHAGEAL REFLUX DISEASE
     Route: 048
     Dates: start: 20071208, end: 20171231
  9. NEXIUM [Suspect]
     Active Substance: ESOMEPRAZOLE MAGNESIUM
     Indication: GASTROOESOPHAGEAL REFLUX DISEASE
     Dosage: 40.0MG UNKNOWN
     Route: 048
  10. PANTOPRAZOLE [Suspect]
     Active Substance: PANTOPRAZOLE
     Route: 065
  11. METOCLOPRAMIDE. [Concomitant]
     Active Substance: METOCLOPRAMIDE
  12. LIPITOR [Concomitant]
     Active Substance: ATORVASTATIN CALCIUM
  13. FLUVIRIN NOS [Concomitant]
     Active Substance: INFLUENZA VIRUS VACCINE
  14. PEPCID [Concomitant]
     Active Substance: FAMOTIDINE
  15. PRILOSEC [Suspect]
     Active Substance: OMEPRAZOLE MAGNESIUM
     Route: 048
  16. PREVACID [Suspect]
     Active Substance: LANSOPRAZOLE
     Route: 065
  17. DEXILANT [Suspect]
     Active Substance: DEXLANSOPRAZOLE
     Route: 065
     Dates: start: 20071208, end: 20171231
  18. ANTARA [Concomitant]
     Active Substance: FENOFIBRATE
  19. CYMBALTA [Concomitant]
     Active Substance: DULOXETINE HYDROCHLORIDE
  20. GABAPENTIN. [Concomitant]
     Active Substance: GABAPENTIN
  21. TUMS [Concomitant]
     Active Substance: CALCIUM CARBONATE

REACTIONS (2)
  - Renal failure [Not Recovered/Not Resolved]
  - Chronic kidney disease [Not Recovered/Not Resolved]
